FAERS Safety Report 6407205-9 (Version None)
Quarter: 2009Q4

REPORT INFORMATION
  Report Type: 
  Country: None (occurrence: None)
  Receive Date: 20091020
  Receipt Date: 20090917
  Transmission Date: 20100525
  Serious: No
  Sender: FDA-Public Use
  Company Number: US-BAYER-200934022NA

PATIENT
  Age: 39 Year
  Sex: Female

DRUGS (4)
  1. MIRENA [Suspect]
     Indication: DYSMENORRHOEA
     Route: 015
     Dates: start: 20090814
  2. MELOXICAM [Concomitant]
  3. ZOLOFT [Concomitant]
  4. ACYCLOVIR [Concomitant]

REACTIONS (1)
  - PRURITUS [None]
